FAERS Safety Report 23386329 (Version 1)
Quarter: 2024Q1

REPORT INFORMATION
  Report Type: Report from Study
  Country: US (occurrence: None)
  Receive Date: 20240110
  Receipt Date: 20240110
  Transmission Date: 20240409
  Serious: Yes (Other)
  Sender: FDA-Public Use
  Company Number: 2024A004484

PATIENT
  Sex: Female

DRUGS (8)
  1. FASENRA [Suspect]
     Active Substance: BENRALIZUMAB
     Indication: Osteoporosis
     Dosage: 30MG/ML EVERY FOUR WEEKS
     Route: 058
  2. BREZTRI [Suspect]
     Active Substance: BUDESONIDE\FORMOTEROL\GLYCOPYRROLATE
     Dosage: 160-9.4 UNKNOWN
     Route: 055
  3. METHOTREXATE [Suspect]
     Active Substance: METHOTREXATE
  4. JARDIANCE [Concomitant]
     Active Substance: EMPAGLIFLOZIN
     Dosage: 25.0MG UNKNOWN
  5. QULIPTA [Concomitant]
     Active Substance: ATOGEPANT
     Dosage: 30.0MG UNKNOWN
  6. ALBUTEROL [Concomitant]
     Active Substance: ALBUTEROL
     Dosage: UNKNOWN
  7. GABAPENTIN [Concomitant]
     Active Substance: GABAPENTIN
     Dosage: UNKNOWN
  8. HUMALOG [Concomitant]
     Active Substance: INSULIN LISPRO
     Dosage: UNKNOWN

REACTIONS (10)
  - Pneumonitis [Not Recovered/Not Resolved]
  - Interstitial lung disease [Unknown]
  - Malaise [Not Recovered/Not Resolved]
  - Dysphonia [Not Recovered/Not Resolved]
  - Dyspnoea exertional [Not Recovered/Not Resolved]
  - Basophil count abnormal [Unknown]
  - Rheumatoid arthritis [Unknown]
  - Polycythaemia vera [Not Recovered/Not Resolved]
  - Drug ineffective [Unknown]
  - Eosinophil count abnormal [Unknown]
